FAERS Safety Report 7041334-4 (Version None)
Quarter: 2010Q4

REPORT INFORMATION
  Report Type: 
  Country: None (occurrence: None)
  Receive Date: 20101013
  Receipt Date: 20100914
  Transmission Date: 20110411
  Serious: No
  Sender: FDA-Public Use
  Company Number: US-BAUSCH-2010BL005242

PATIENT

DRUGS (2)
  1. ZIRGAN [Suspect]
     Indication: ADENOVIRAL CONJUNCTIVITIS
     Route: 047
  2. ZIRGAN [Suspect]
     Indication: OFF LABEL USE
     Route: 047

REACTIONS (1)
  - KERATITIS [None]
